FAERS Safety Report 4757064-5 (Version None)
Quarter: 2005Q3

REPORT INFORMATION
  Report Type: 
  Country: None (occurrence: None)
  Receive Date: 20050829
  Receipt Date: 20050829
  Transmission Date: 20060218
  Serious: Yes (Hospitalization)
  Sender: FDA-Public Use
  Company Number: None

PATIENT
  Age: 59 Year
  Sex: Female
  Weight: 56.6996 kg

DRUGS (5)
  1. TARGRETIN [Suspect]
     Indication: LUNG CANCER METASTATIC
     Dosage: 596 MG = 8 TABS Q DAY PO
     Route: 048
     Dates: start: 20050202, end: 20050823
  2. AMBIEN [Concomitant]
  3. LIPITOR [Concomitant]
  4. ELAVIL [Concomitant]
  5. SYNTHROID [Concomitant]

REACTIONS (3)
  - CONFUSIONAL STATE [None]
  - HEADACHE [None]
  - METASTASES TO CENTRAL NERVOUS SYSTEM [None]
